FAERS Safety Report 10776963 (Version 1)
Quarter: 2015Q1

REPORT INFORMATION
  Report Type: Spontaneous
  Country: US (occurrence: None)
  Receive Date: 20150206
  Receipt Date: 20150206
  Transmission Date: 20150721
  Serious: Yes (Other)
  Sender: FDA-Public Use
  Company Number: None

PATIENT
  Age: 49 Year
  Sex: Female

DRUGS (1)
  1. CREST PRO-HEALTH CLINICAL [Suspect]
     Active Substance: CETYLPYRIDINIUM CHLORIDE
     Indication: DENTAL CARE
     Dates: start: 20150203, end: 20150204

REACTIONS (3)
  - Contusion [None]
  - Oral discomfort [None]
  - Swelling face [None]

NARRATIVE: CASE EVENT DATE: 20150204
